FAERS Safety Report 11076924 (Version 2)
Quarter: 2015Q2

REPORT INFORMATION
  Report Type: Spontaneous
  Country: US (occurrence: US)
  Receive Date: 20150429
  Receipt Date: 20150526
  Transmission Date: 20150821
  Serious: No
  Sender: FDA-Public Use
  Company Number: US-JNJFOC-20130909615

PATIENT
  Age: 81 Year
  Sex: Female
  Weight: 55.79 kg

DRUGS (2)
  1. IMODIUM A-D [Suspect]
     Active Substance: LOPERAMIDE HYDROCHLORIDE
     Route: 048
  2. IMODIUM A-D [Suspect]
     Active Substance: LOPERAMIDE HYDROCHLORIDE
     Indication: DIARRHOEA
     Dosage: (ONE IN THE MORNING AND ONE AT NIGHT).
     Route: 048

REACTIONS (3)
  - Product blister packaging issue [Unknown]
  - Dysphagia [Recovered/Resolved]
  - Product quality issue [Unknown]
